FAERS Safety Report 23471385 (Version 1)
Quarter: 2024Q1

REPORT INFORMATION
  Report Type: Report from Study
  Country: US (occurrence: US)
  Receive Date: 20240202
  Receipt Date: 20240202
  Transmission Date: 20240410
  Serious: Yes (Death, Hospitalization, Other)
  Sender: FDA-Public Use
  Company Number: US-BAYER-2024A012011

PATIENT
  Age: 83 Year
  Sex: Female

DRUGS (5)
  1. ADEMPAS [Suspect]
     Active Substance: RIOCIGUAT
     Indication: Pulmonary hypertension
  2. ADEMPAS [Suspect]
     Active Substance: RIOCIGUAT
     Indication: Pulmonary hypertension
     Dosage: 2.5 MG, TID
     Route: 048
     Dates: start: 202010
  3. UPTRAVI [Concomitant]
     Active Substance: SELEXIPAG
     Dosage: 400 ?G
  4. UPTRAVI [Concomitant]
     Active Substance: SELEXIPAG
     Dosage: 600 ?G, BID
  5. AMBRISENTAN [Concomitant]
     Active Substance: AMBRISENTAN

REACTIONS (3)
  - Hospitalisation [None]
  - Dependence on respirator [None]
  - Death [Fatal]

NARRATIVE: CASE EVENT DATE: 20240126
